FAERS Safety Report 24952195 (Version 1)
Quarter: 2025Q1

REPORT INFORMATION
  Report Type: Report from Study
  Country: CA (occurrence: CA)
  Receive Date: 20250210
  Receipt Date: 20250210
  Transmission Date: 20250408
  Serious: Yes (Hospitalization, Other)
  Sender: BAUSCH AND LOMB
  Company Number: CA-BAUSCH-BL-2023-009959

PATIENT
  Age: 56 Year
  Sex: Female

DRUGS (6)
  1. SILIQ [Suspect]
     Active Substance: BRODALUMAB
     Indication: Psoriasis
     Dosage: 210NG/ 1.5 ML, (WEEK 0-2)
     Route: 058
     Dates: start: 20230607, end: 202306
  2. SILIQ [Suspect]
     Active Substance: BRODALUMAB
     Dosage: 210 MG/ 1.5 ML, Q2 WEEKS
     Route: 058
     Dates: start: 202306
  3. SILIQ [Suspect]
     Active Substance: BRODALUMAB
     Dosage: 210 MG/ 1.5 ML,
     Route: 058
     Dates: end: 2024
  4. SILIQ [Suspect]
     Active Substance: BRODALUMAB
     Dosage: 210 MG/ 1.5 ML, Q 2 WEEKS
     Route: 058
     Dates: start: 202406
  5. TYLENOL WITH CODEINE [Suspect]
     Active Substance: ACETAMINOPHEN\CODEINE PHOSPHATE
     Indication: Product used for unknown indication
     Route: 065
  6. SYNTHROID [Concomitant]
     Active Substance: LEVOTHYROXINE SODIUM
     Indication: Hypothyroidism

REACTIONS (11)
  - Chest pain [Recovered/Resolved]
  - Hypertension [Recovered/Resolved]
  - Gastrointestinal disorder [Unknown]
  - Skin ulcer [Unknown]
  - Nasal ulcer [Unknown]
  - Urticaria [Unknown]
  - Myalgia [Unknown]
  - Viral infection [Unknown]
  - Arthralgia [Not Recovered/Not Resolved]
  - Disease recurrence [Not Recovered/Not Resolved]
  - Off label use [Unknown]

NARRATIVE: CASE EVENT DATE: 20230101
